FAERS Safety Report 6211516-X (Version None)
Quarter: 2009Q2

REPORT INFORMATION
  Report Type: 
  Country: None (occurrence: None)
  Receive Date: 20090528
  Receipt Date: 20090514
  Transmission Date: 20091009
  Serious: Yes (Disabling)
  Sender: FDA-Public Use
  Company Number: 275096

PATIENT
  Age: 2 Year
  Sex: Male

DRUGS (3)
  1. CARBOPLATIN [Suspect]
     Indication: RETINOBLASTOMA UNILATERAL
     Dosage: 6 CYCLES
  2. ETOPOSIDE [Suspect]
     Indication: RETINOBLASTOMA UNILATERAL
     Dosage: 6 CYCLES
  3. VINCRISTINE [Suspect]
     Indication: RETINOBLASTOMA UNILATERAL
     Dosage: 6 CYCLES

REACTIONS (3)
  - EYE EXCISION [None]
  - NEOPLASM PROGRESSION [None]
  - RETINOBLASTOMA UNILATERAL [None]
